FAERS Safety Report 4480424-7 (Version None)
Quarter: 2004Q4

REPORT INFORMATION
  Report Type: 
  Country: None (occurrence: None)
  Receive Date: 20041018
  Receipt Date: 20041007
  Transmission Date: 20050328
  Serious: Yes (Hospitalization)
  Sender: FDA-Public Use
  Company Number: 430036M04USA

PATIENT
  Age: 44 Year
  Sex: Female

DRUGS (6)
  1. NOVANTRONE [Suspect]
     Indication: MULTIPLE SCLEROSIS
     Dosage: 12 MG/M2,
     Dates: start: 20020110, end: 20040914
  2. SOLU-MEDROL [Concomitant]
  3. EFFEXOR [Concomitant]
  4. ZANAFLEX [Concomitant]
  5. BACLOFEN [Concomitant]
  6. REBIF [Concomitant]

REACTIONS (5)
  - CARDIAC FAILURE CONGESTIVE [None]
  - CHEST PAIN [None]
  - CONGESTIVE CARDIOMYOPATHY [None]
  - FLUID OVERLOAD [None]
  - PULMONARY CONGESTION [None]
